FAERS Safety Report 9157955 (Version 3)
Quarter: 2014Q3

REPORT INFORMATION
  Report Type: Spontaneous
  Country: MY (occurrence: None)
  Receive Date: 20130213
  Receipt Date: 20140808
  Transmission Date: 20150326
  Serious: Yes (Life-Threatening)
  Sender: FDA-Public Use
  Company Number: VAL_01383_2013

PATIENT
  Age: 68 Year
  Sex: Male

DRUGS (8)
  1. SIMVASTATIN. [Concomitant]
     Active Substance: SIMVASTATIN
  2. METOPROLOL [Suspect]
     Active Substance: METOPROLOL
     Indication: CARDIAC FAILURE
     Route: 048
     Dates: start: 20070420, end: 20130202
  3. LCZ696 [Suspect]
     Active Substance: INVESTIGATIONAL PRODUCT
     Indication: CARDIAC FAILURE CHRONIC
     Dosage: CODE NOT BROKEN, ORAL
     Route: 048
     Dates: start: 20121124, end: 20130202
  4. METOPROLOL [Suspect]
     Active Substance: METOPROLOL
     Indication: HYPERTENSION
     Route: 048
     Dates: start: 20070420, end: 20130202
  5. SLOW K [Concomitant]
     Active Substance: POTASSIUM CHLORIDE
  6. LASIX [Suspect]
     Active Substance: FUROSEMIDE
     Indication: CARDIAC FAILURE
     Route: 048
     Dates: start: 20121003, end: 20130202
  7. ASPIRIN. [Concomitant]
     Active Substance: ASPIRIN
  8. METFORMIN [Concomitant]
     Active Substance: METFORMIN HYDROCHLORIDE

REACTIONS (6)
  - Dizziness [None]
  - Atrial fibrillation [None]
  - Renal failure acute [None]
  - Hyperkalaemia [None]
  - Diabetic nephropathy [None]
  - Dyspnoea [None]

NARRATIVE: CASE EVENT DATE: 20130202
